FAERS Safety Report 24130194 (Version 1)
Quarter: 2024Q3

REPORT INFORMATION
  Report Type: Spontaneous
  Country: US (occurrence: US)
  Receive Date: 20240724
  Receipt Date: 20240724
  Transmission Date: 20241017
  Serious: No
  Sender: LUPIN
  Company Number: US-LUPIN PHARMACEUTICALS INC.-2024-06780

PATIENT

DRUGS (1)
  1. BUPROPION HYDROCHLORIDE [Suspect]
     Active Substance: BUPROPION HYDROCHLORIDE
     Indication: Product used for unknown indication
     Dosage: UNK
     Route: 065

REACTIONS (9)
  - Dehydration [Unknown]
  - Dry mouth [Unknown]
  - Anxiety [Unknown]
  - Cognitive disorder [Unknown]
  - Memory impairment [Unknown]
  - Obsessive-compulsive symptom [Unknown]
  - Insomnia [Unknown]
  - Headache [Unknown]
  - Adverse drug reaction [Unknown]
